FAERS Safety Report 7441653-3 (Version None)
Quarter: 2011Q2

REPORT INFORMATION
  Report Type: 
  Country: None (occurrence: None)
  Receive Date: 20110420
  Receipt Date: 20110413
  Transmission Date: 20111010
  Serious: Yes (Other)
  Sender: FDA-Public Use
  Company Number: 2011SP016907

PATIENT
  Age: 76 Year
  Sex: Male

DRUGS (9)
  1. LASIX [Concomitant]
  2. VIAGRA [Concomitant]
  3. HALCION [Concomitant]
  4. REMERON [Suspect]
     Indication: PRODUCT USED FOR UNKNOWN INDICATION
     Dosage: PO
     Route: 048
     Dates: start: 20110301
  5. GLYBURIDE [Concomitant]
  6. MELBIN [Concomitant]
  7. RIVOTRIL [Concomitant]
  8. WARFARIN (WARFARIN POTASSIUM) [Concomitant]
  9. BUFFERIN (MAGNESIUM CARBONATE) [Concomitant]

REACTIONS (3)
  - MYALGIA [None]
  - RHABDOMYOLYSIS [None]
  - BLOOD CREATINE PHOSPHOKINASE INCREASED [None]
